FAERS Safety Report 7142590-4 (Version None)
Quarter: 2010Q4

REPORT INFORMATION
  Report Type: 
  Country: None (occurrence: None)
  Receive Date: 20101207
  Receipt Date: 20101130
  Transmission Date: 20110411
  Serious: Yes (Other)
  Sender: FDA-Public Use
  Company Number: US-JNJCH-2010026620

PATIENT
  Age: 47 Year
  Sex: Male
  Weight: 83.9 kg

DRUGS (2)
  1. LISTERINE WHITENING QUICK DISSOLVING STRIPS [Suspect]
     Indication: DENTAL CARE
     Dosage: TEXT:TWO STRIPS ONCE
     Route: 048
     Dates: start: 20101118, end: 20101118
  2. PLAVIX [Concomitant]
     Indication: THROMBOSIS
     Dosage: TEXT:1X A DAY
     Route: 065

REACTIONS (3)
  - EXPIRED DRUG ADMINISTERED [None]
  - TOOTH DISCOLOURATION [None]
  - TOOTH EROSION [None]
